FAERS Safety Report 13548081 (Version 1)
Quarter: 2017Q2

REPORT INFORMATION
  Report Type: Spontaneous
  Country: US (occurrence: US)
  Receive Date: 20170516
  Receipt Date: 20170516
  Transmission Date: 20170830
  Serious: No
  Sender: FDA-Public Use
  Company Number: US-ASTRAZENECA-2017SE48969

PATIENT
  Age: 19419 Day
  Sex: Male
  Weight: 79.4 kg

DRUGS (5)
  1. NEXIUM [Suspect]
     Active Substance: ESOMEPRAZOLE MAGNESIUM
     Indication: GASTROOESOPHAGEAL REFLUX DISEASE
     Route: 048
     Dates: start: 2003, end: 201312
  2. NEXIUM [Suspect]
     Active Substance: ESOMEPRAZOLE MAGNESIUM
     Indication: HIATUS HERNIA
     Route: 048
     Dates: start: 2003, end: 201312
  3. NEXIUM [Suspect]
     Active Substance: ESOMEPRAZOLE MAGNESIUM
     Indication: GASTROOESOPHAGEAL REFLUX DISEASE
     Dosage: GENERIC40.0MG UNKNOWN
     Route: 065
  4. NEXIUM [Suspect]
     Active Substance: ESOMEPRAZOLE MAGNESIUM
     Indication: HIATUS HERNIA
     Dosage: GENERIC40.0MG UNKNOWN
     Route: 065
  5. NEXIUM 24HR [Suspect]
     Active Substance: ESOMEPRAZOLE MAGNESIUM
     Indication: GASTROOESOPHAGEAL REFLUX DISEASE
     Route: 048
     Dates: start: 201301, end: 201701

REACTIONS (11)
  - Weight increased [Unknown]
  - Barrett^s oesophagus [Unknown]
  - Dyspepsia [Unknown]
  - Hypophagia [Unknown]
  - Product use in unapproved indication [Unknown]
  - Product use issue [Unknown]
  - Gastrooesophageal reflux disease [Unknown]
  - Osteopenia [Unknown]
  - Weight decreased [Unknown]
  - Off label use [Unknown]
  - Adverse event [Unknown]

NARRATIVE: CASE EVENT DATE: 201702
